FAERS Safety Report 6144475-9 (Version None)
Quarter: 2009Q2

REPORT INFORMATION
  Report Type: 
  Country: None (occurrence: None)
  Receive Date: 20090406
  Receipt Date: 20090325
  Transmission Date: 20091009
  Serious: Yes (Hospitalization, Disabling, Other)
  Sender: FDA-Public Use
  Company Number: AU-PFIZER INC-2009174486

PATIENT

DRUGS (4)
  1. SUTENT [Suspect]
     Indication: RENAL CELL CARCINOMA
     Dosage: 50 MG, 1X/DAY
     Route: 048
     Dates: start: 20081010, end: 20090113
  2. RAMIPRIL [Concomitant]
     Route: 048
     Dates: start: 20050101, end: 20081029
  3. CALTRATE [Concomitant]
     Dosage: UNK
     Route: 048
     Dates: start: 20050101
  4. SPIRIVA [Concomitant]
     Dosage: UNK
     Route: 055
     Dates: start: 20050101

REACTIONS (4)
  - ANOREXIA [None]
  - DEHYDRATION [None]
  - LETHARGY [None]
  - WEIGHT DECREASED [None]
